FAERS Safety Report 6623709-8 (Version None)
Quarter: 2010Q1

REPORT INFORMATION
  Report Type: 
  Country: None (occurrence: None)
  Receive Date: 20100310
  Receipt Date: 20091113
  Transmission Date: 20100710
  Serious: No
  Sender: FDA-Public Use
  Company Number: US-BIOGENIDEC-2009BI036980

PATIENT
  Age: 43 Year
  Sex: Female

DRUGS (2)
  1. AVONEX [Suspect]
     Indication: MULTIPLE SCLEROSIS
     Route: 030
     Dates: start: 20000101, end: 20020101
  2. AVONEX [Suspect]
     Route: 030
     Dates: start: 20091025

REACTIONS (4)
  - ABNORMAL DREAMS [None]
  - FATIGUE [None]
  - INFLUENZA LIKE ILLNESS [None]
  - TREMOR [None]
